FAERS Safety Report 21671000 (Version 2)
Quarter: 2022Q4

REPORT INFORMATION
  Report Type: Spontaneous
  Country: US (occurrence: US)
  Receive Date: 20221202
  Receipt Date: 20221219
  Transmission Date: 20230113
  Serious: No
  Sender: FDA-Public Use
  Company Number: US-GBT-015746

PATIENT
  Age: 40 Year
  Sex: Female

DRUGS (2)
  1. OXBRYTA [Suspect]
     Active Substance: VOXELOTOR
     Indication: Sickle cell disease
  2. HYDROXYUREA [Concomitant]
     Active Substance: HYDROXYUREA
     Indication: Product used for unknown indication

REACTIONS (6)
  - Product use complaint [Unknown]
  - Urticaria [Unknown]
  - Headache [Unknown]
  - Therapy cessation [Unknown]
  - Product use issue [Unknown]
  - Product dose omission issue [Unknown]
